FAERS Safety Report 5798186-X (Version None)
Quarter: 2008Q3

REPORT INFORMATION
  Report Type: 
  Country: None (occurrence: None)
  Receive Date: 20080702
  Receipt Date: 20080627
  Transmission Date: 20090109
  Serious: Yes (Hospitalization)
  Sender: FDA-Public Use
  Company Number: A0735644A

PATIENT
  Age: 53 Year
  Sex: Male
  Weight: 36.4 kg

DRUGS (2)
  1. LAPATINIB [Suspect]
     Indication: GASTRIC CANCER
     Dosage: 1500MG CYCLIC
     Route: 048
     Dates: start: 20080509
  2. VINORELBINE [Suspect]
     Indication: GASTRIC CANCER
     Dosage: 37MG CYCLIC
     Route: 042
     Dates: start: 20080509

REACTIONS (5)
  - ASTHENIA [None]
  - GAIT DISTURBANCE [None]
  - NAUSEA [None]
  - VOMITING [None]
  - WEIGHT DECREASED [None]
